FAERS Safety Report 9294671 (Version 1)
Quarter: 2013Q1

REPORT INFORMATION
  Report Type: Spontaneous
  Country: US (occurrence: None)
  Receive Date: 20121214
  Receipt Date: 20121214
  Transmission Date: 20140127
  Serious: Yes (Hospitalization)
  Sender: FDA-Public Use
  Company Number: 1205USA04637

PATIENT
  Age: 65 Year
  Sex: Female

DRUGS (4)
  1. JANUVIA (SITAGLIPTIN PHOSPHATE) FILM-COATED TABLET [Suspect]
     Route: 048
     Dates: start: 201008, end: 20120508
  2. ZETIA (EZETIMIBE) TABLET [Suspect]
     Route: 048
  3. PAXIL (PAROXETINE HYDROCHLORIDE) [Concomitant]
  4. XANAX (ALPRAZOLAM) [Concomitant]

REACTIONS (1)
  - Pancreatitis [None]
